FAERS Safety Report 18935977 (Version 1)
Quarter: 2021Q1

REPORT INFORMATION
  Report Type: Report from Study
  Country: CA (occurrence: CA)
  Receive Date: 20210224
  Receipt Date: 20210224
  Transmission Date: 20210420
  Serious: Yes (Hospitalization)
  Sender: FDA-Public Use
  Company Number: CA-PFIZER INC-2019317801

PATIENT
  Age: 17 Year
  Sex: Male
  Weight: 85 kg

DRUGS (5)
  1. METHOTREXATE SODIUM. [Suspect]
     Active Substance: METHOTREXATE SODIUM
     Dosage: UNK
     Route: 065
  2. AZATHIOPRINE. [Concomitant]
     Active Substance: AZATHIOPRINE
     Indication: CROHN^S DISEASE
     Dosage: UNK
     Route: 048
     Dates: start: 201408
  3. HUMIRA [Suspect]
     Active Substance: ADALIMUMAB
     Indication: CROHN^S DISEASE
     Dosage: 40 MG, WEEKLY
     Route: 058
     Dates: start: 201408
  4. IMURAN [Concomitant]
     Active Substance: AZATHIOPRINE
     Dosage: UNK
  5. HUMIRA [Suspect]
     Active Substance: ADALIMUMAB
     Indication: CROHN^S DISEASE
     Dosage: 40 MG, CYCLIC (1 EVERY 2 WEEKS)
     Route: 065
     Dates: start: 20140623, end: 2014

REACTIONS (5)
  - Anal fistula [Unknown]
  - Crohn^s disease [Unknown]
  - Drug intolerance [Unknown]
  - Abscess [Unknown]
  - Anal fissure [Unknown]

NARRATIVE: CASE EVENT DATE: 2014
